FAERS Safety Report 25498188 (Version 1)
Quarter: 2025Q3

REPORT INFORMATION
  Report Type: Spontaneous
  Country: CN (occurrence: CN)
  Receive Date: 20250701
  Receipt Date: 20250701
  Transmission Date: 20251020
  Serious: Yes (Death, Hospitalization, Other)
  Sender: PANACEA BIOTEC PHARMA LIMITED
  Company Number: CN-PBT-010558

PATIENT
  Age: 64 Year
  Sex: Male

DRUGS (24)
  1. TACROLIMUS [Suspect]
     Active Substance: TACROLIMUS
     Indication: Protein-losing gastroenteropathy
     Route: 065
  2. CYCLOSPORINE [Suspect]
     Active Substance: CYCLOSPORINE
     Indication: Protein-losing gastroenteropathy
     Route: 048
     Dates: start: 202310, end: 2023
  3. PREDNISONE [Suspect]
     Active Substance: PREDNISONE
     Indication: Protein-losing gastroenteropathy
     Route: 048
     Dates: start: 202310, end: 2023
  4. PREDNISONE [Suspect]
     Active Substance: PREDNISONE
     Indication: Lymphoproliferative disorder
     Route: 048
     Dates: start: 2023, end: 2023
  5. PREDNISONE [Suspect]
     Active Substance: PREDNISONE
     Indication: Protein-losing gastroenteropathy
     Route: 048
  6. PREDNISONE [Suspect]
     Active Substance: PREDNISONE
     Indication: Protein-losing gastroenteropathy
     Route: 048
  7. PREDNISONE [Suspect]
     Active Substance: PREDNISONE
     Indication: Protein-losing gastroenteropathy
     Route: 048
  8. PREDNISONE [Suspect]
     Active Substance: PREDNISONE
     Indication: Protein-losing gastroenteropathy
     Dosage: GRADUALLY TAPERED
     Route: 048
  9. PREDNISONE [Suspect]
     Active Substance: PREDNISONE
     Indication: Lymphoproliferative disorder
     Route: 048
     Dates: start: 202310, end: 2023
  10. PREDNISONE [Suspect]
     Active Substance: PREDNISONE
     Indication: Protein-losing gastroenteropathy
     Route: 048
     Dates: start: 2023, end: 2023
  11. PREDNISONE [Suspect]
     Active Substance: PREDNISONE
     Indication: Lymphoproliferative disorder
     Route: 048
  12. PREDNISONE [Suspect]
     Active Substance: PREDNISONE
     Indication: Lymphoproliferative disorder
     Route: 048
  13. PREDNISONE [Suspect]
     Active Substance: PREDNISONE
     Indication: Lymphoproliferative disorder
     Route: 048
  14. PREDNISONE [Suspect]
     Active Substance: PREDNISONE
     Indication: Lymphoproliferative disorder
     Dosage: GRADUALLY TAPERED
     Route: 048
  15. CYCLOSPORINE [Suspect]
     Active Substance: CYCLOSPORINE
     Indication: Lymphoproliferative disorder
     Route: 048
     Dates: start: 202310, end: 2023
  16. CYCLOSPORINE [Suspect]
     Active Substance: CYCLOSPORINE
     Indication: Protein-losing gastroenteropathy
     Route: 048
     Dates: start: 2023
  17. CYCLOSPORINE [Suspect]
     Active Substance: CYCLOSPORINE
     Indication: Lymphoproliferative disorder
     Route: 048
     Dates: start: 2023
  18. CYCLOSPORINE [Suspect]
     Active Substance: CYCLOSPORINE
     Indication: Protein-losing gastroenteropathy
     Route: 048
  19. CYCLOSPORINE [Suspect]
     Active Substance: CYCLOSPORINE
     Indication: Lymphoproliferative disorder
     Route: 048
  20. TACROLIMUS [Suspect]
     Active Substance: TACROLIMUS
     Indication: Lymphoproliferative disorder
     Route: 065
  21. PREDNISONE [Suspect]
     Active Substance: PREDNISONE
     Indication: Protein-losing gastroenteropathy
     Route: 048
  22. PREDNISONE [Suspect]
     Active Substance: PREDNISONE
     Indication: Lymphoproliferative disorder
     Route: 048
  23. PREDNISONE [Suspect]
     Active Substance: PREDNISONE
     Indication: Protein-losing gastroenteropathy
     Route: 048
  24. PREDNISONE [Suspect]
     Active Substance: PREDNISONE
     Indication: Lymphoproliferative disorder
     Route: 048

REACTIONS (13)
  - Diarrhoea [Not Recovered/Not Resolved]
  - Hypoalbuminaemia [Not Recovered/Not Resolved]
  - Therapeutic product effect incomplete [Unknown]
  - Pneumonia [Unknown]
  - Cytomegalovirus viraemia [Fatal]
  - Deep vein thrombosis [Fatal]
  - Gastrointestinal haemorrhage [Fatal]
  - Product use in unapproved indication [Unknown]
  - Lymphocyte count decreased [Unknown]
  - Blood immunoglobulin G decreased [Unknown]
  - Electrolyte imbalance [Unknown]
  - Protein-losing gastroenteropathy [Fatal]
  - Disease progression [Fatal]
